FAERS Safety Report 7011705-0 (Version None)
Quarter: 2010Q3

REPORT INFORMATION
  Report Type: 
  Country: None (occurrence: None)
  Receive Date: 20100923
  Receipt Date: 20090623
  Transmission Date: 20110219
  Serious: No
  Sender: FDA-Public Use
  Company Number: US-WYE-H09145609

PATIENT
  Sex: Female
  Weight: 51.76 kg

DRUGS (6)
  1. PREMARIN [Suspect]
     Indication: VULVOVAGINAL DRYNESS
     Dosage: ONE DOSE OF 1 GM
     Route: 067
     Dates: start: 20080101, end: 20080101
  2. PREMARIN [Suspect]
     Dosage: ONE DOSE OF 0.5 GM
     Route: 067
     Dates: start: 20080801, end: 20080801
  3. PREMARIN [Suspect]
     Dosage: ONE DOSE OF 0.5 GM
     Route: 067
     Dates: start: 20090422, end: 20090422
  4. FOSAMAX [Concomitant]
  5. CALCIUM [Concomitant]
  6. SYNTHROID [Concomitant]

REACTIONS (2)
  - VAGINAL SWELLING [None]
  - VULVOVAGINAL BURNING SENSATION [None]
